FAERS Safety Report 13203041 (Version 1)
Quarter: 2017Q1

REPORT INFORMATION
  Report Type: Spontaneous
  Country: US (occurrence: US)
  Receive Date: 20170208
  Receipt Date: 20170208
  Transmission Date: 20170428
  Serious: No
  Sender: FDA-Public Use
  Company Number: US-AMGEN-USASP2016089093

PATIENT
  Age: 52 Year
  Sex: Female

DRUGS (1)
  1. NEULASTA [Suspect]
     Active Substance: PEGFILGRASTIM
     Indication: PRODUCT USED FOR UNKNOWN INDICATION
     Dosage: UNK
     Route: 065

REACTIONS (7)
  - Application site extravasation [Unknown]
  - Gait disturbance [Unknown]
  - Fatigue [Unknown]
  - Myalgia [Unknown]
  - Application site mass [Unknown]
  - Sleep disorder due to a general medical condition [Unknown]
  - Bone pain [Unknown]
